FAERS Safety Report 10411970 (Version 1)
Quarter: 2014Q2

REPORT INFORMATION
  Report Type: Spontaneous
  Country: US (occurrence: None)
  Receive Date: 20140514
  Receipt Date: 20140514
  Transmission Date: 20141212
  Serious: Yes (Other)
  Sender: FDA-Public Use
  Company Number: 103743

PATIENT
  Sex: Male

DRUGS (1)
  1. CIMZIA [Suspect]
     Indication: COLITIS ULCERATIVE
     Dosage: 400 MG 1X / 4 WEEKS SUBCUTANEOUS
     Route: 058
     Dates: start: 20130706

REACTIONS (2)
  - Visual acuity reduced [None]
  - Blood glucose increased [None]
